FAERS Safety Report 8683348 (Version 5)
Quarter: 2012Q4

REPORT INFORMATION
  Report Type: 
  Country: FR (occurrence: FR)
  Receive Date: 20120726
  Receipt Date: 20121220
  Transmission Date: 20130627
  Serious: Yes (Hospitalization, Disabling, Other)
  Sender: FDA-Public Use
  Company Number: FR-MSD-2006SP003579

PATIENT
  Sex: Male
  Weight: 84 kg

DRUGS (8)
  1. VIRAFERONPEG [Suspect]
     Indication: HEPATITIS C
     Dosage: 135 ?g, QW
     Route: 058
     Dates: start: 20060321, end: 20060928
  2. REBETOL [Suspect]
     Indication: HEPATITIS C
     Dosage: 1200 mg, QD
     Route: 048
     Dates: start: 20060321, end: 20060928
  3. REBETOL [Suspect]
     Dosage: 800 mg, QD
     Route: 048
     Dates: start: 20060928
  4. PERINDOPRIL [Concomitant]
     Indication: PRODUCT USED FOR UNKNOWN INDICATION
  5. AMLOR [Concomitant]
     Indication: PRODUCT USED FOR UNKNOWN INDICATION
  6. FLUDEX [Concomitant]
     Indication: PRODUCT USED FOR UNKNOWN INDICATION
  7. DIFFU-K [Concomitant]
     Indication: PRODUCT USED FOR UNKNOWN INDICATION
  8. APROVEL [Concomitant]
     Indication: HYPERTENSION

REACTIONS (22)
  - Retinal vein thrombosis [Recovered/Resolved with Sequelae]
  - Visual acuity reduced [Not Recovered/Not Resolved]
  - Retinopathy proliferative [Unknown]
  - Proctalgia [Unknown]
  - Dry mouth [Unknown]
  - Skin discomfort [Unknown]
  - Leukopenia [Unknown]
  - Neutropenia [Unknown]
  - Thrombocytopenia [Unknown]
  - Libido decreased [Unknown]
  - Proctitis [None]
  - Vomiting [None]
  - Colitis [None]
  - Constipation [None]
  - Anal fissure [None]
  - Anxiety [None]
  - Overweight [None]
  - Ventricular hyperkinesia [None]
  - Hypertension [None]
  - Haematocrit decreased [None]
  - Aortic dilatation [None]
  - Cataract subcapsular [None]
